FAERS Safety Report 7653245-1 (Version None)
Quarter: 2011Q3

REPORT INFORMATION
  Report Type: 
  Country: None (occurrence: None)
  Receive Date: 20110803
  Receipt Date: 20110726
  Transmission Date: 20111222
  Serious: Yes (Other)
  Sender: FDA-Public Use
  Company Number: DE-ABBOTT-11P-062-0843086-00

PATIENT
  Sex: Male

DRUGS (5)
  1. FLECAINIDE ACETATE [Concomitant]
     Indication: ATRIAL FIBRILLATION
     Dosage: TOLERATED PRIOR USE
     Route: 048
  2. CYPROTERONE ACETATE [Concomitant]
     Indication: PRODUCT USED FOR UNKNOWN INDICATION
     Route: 048
     Dates: start: 20110501
  3. LEUPROLIDE ACETATE [Suspect]
     Indication: PROSTATE CANCER RECURRENT
     Route: 058
     Dates: start: 20110509
  4. ASPIRIN [Concomitant]
     Indication: ATRIAL FIBRILLATION
     Route: 048
  5. LEVOTHYROXINE SODIUM [Concomitant]
     Indication: THYROID DISORDER
     Route: 048

REACTIONS (1)
  - ATRIAL FIBRILLATION [None]
